FAERS Safety Report 5338267-8 (Version None)
Quarter: 2007Q2

REPORT INFORMATION
  Report Type: 
  Country: None (occurrence: None)
  Receive Date: 20070530
  Receipt Date: 20060407
  Transmission Date: 20071010
  Serious: No
  Sender: FDA-Public Use
  Company Number: A0600934A

PATIENT
  Sex: Female

DRUGS (1)
  1. DIGIBIND [Suspect]

REACTIONS (1)
  - DRUG INEFFECTIVE [None]
